FAERS Safety Report 4616341-9 (Version None)
Quarter: 2005Q1

REPORT INFORMATION
  Report Type: 
  Country: None (occurrence: None)
  Receive Date: 20050321
  Receipt Date: 20050309
  Transmission Date: 20050727
  Serious: Yes (Other)
  Sender: FDA-Public Use
  Company Number: HQWYE006910MAR05

PATIENT
  Age: 43 Year
  Sex: Female
  Weight: 90.8 kg

DRUGS (3)
  1. EFFEXOR XR [Suspect]
     Indication: DEPRESSION
     Dosage: 37.5 MG 1X PER 1 DAY, ORAL
     Route: 048
     Dates: start: 20050201, end: 20050307
  2. ZOLOFT [Concomitant]
  3. ABILIFY [Concomitant]

REACTIONS (4)
  - ANGER [None]
  - HOSTILITY [None]
  - NERVOUSNESS [None]
  - SELF-INJURIOUS IDEATION [None]
